FAERS Safety Report 6935765-8 (Version None)
Quarter: 2010Q3

REPORT INFORMATION
  Report Type: 
  Country: None (occurrence: None)
  Receive Date: 20100819
  Receipt Date: 20100819
  Transmission Date: 20110219
  Serious: Yes (Hospitalization)
  Sender: FDA-Public Use
  Company Number: None

PATIENT
  Sex: Female
  Weight: 67.99 kg

DRUGS (2)
  1. CISPLATIN [Suspect]
     Dosage: 144.8 MG
  2. ETOPOSIDE [Suspect]
     Dosage: 543 MG

REACTIONS (4)
  - FEBRILE NEUTROPENIA [None]
  - PNEUMONIA [None]
  - RENAL FAILURE ACUTE [None]
  - SKIN LESION [None]
